FAERS Safety Report 7236551-4 (Version None)
Quarter: 2011Q1

REPORT INFORMATION
  Report Type: 
  Country: None (occurrence: None)
  Receive Date: 20110112
  Receipt Date: 20110103
  Transmission Date: 20110831
  Serious: Yes (Other)
  Sender: FDA-Public Use
  Company Number: 2010MA004978

PATIENT
  Age: 64 Year
  Sex: Female

DRUGS (11)
  1. LEVOTHYROXINE SODIUM [Concomitant]
  2. FUROSEMIDE [Concomitant]
  3. FERROUS SULFATE TAB [Concomitant]
  4. BISOPROLOL [Concomitant]
  5. FEVERALL [Suspect]
     Indication: ANALGESIC THERAPY
     Dosage: PRN;
     Dates: start: 20101029
  6. SPIRONOLACTONE [Concomitant]
  7. RAMIPRIL [Concomitant]
  8. SOLPADOL (PANADEINE CO) [Suspect]
     Indication: PAIN
  9. PARACETAMOL [Concomitant]
  10. WARFARIN [Concomitant]
  11. LANSOPRAZOLE [Concomitant]

REACTIONS (3)
  - MUSCLE SPASMS [None]
  - CONDITION AGGRAVATED [None]
  - ABDOMINAL PAIN [None]
